FAERS Safety Report 6464581-9 (Version None)
Quarter: 2009Q4

REPORT INFORMATION
  Report Type: 
  Country: None (occurrence: None)
  Receive Date: 20091201
  Receipt Date: 20091119
  Transmission Date: 20100525
  Serious: Yes (Other)
  Sender: FDA-Public Use
  Company Number: AU-PFIZER INC-2009300387

PATIENT
  Age: 74 Year
  Sex: Female

DRUGS (1)
  1. LYRICA [Suspect]
     Dosage: 300 MG, 2X/DAY

REACTIONS (2)
  - DELIRIUM [None]
  - DRUG WITHDRAWAL SYNDROME [None]
